FAERS Safety Report 25013207 (Version 2)
Quarter: 2025Q1

REPORT INFORMATION
  Report Type: Spontaneous
  Country: US (occurrence: US)
  Receive Date: 20250226
  Receipt Date: 20250311
  Transmission Date: 20250409
  Serious: Yes (Hospitalization, Other)
  Sender: BridgeBio Pharma
  Company Number: US-BRIDGEBIO-25US000177

PATIENT
  Sex: Male

DRUGS (1)
  1. ATTRUBY [Suspect]
     Active Substance: ACORAMIDIS HYDROCHLORIDE
     Indication: Product used for unknown indication
     Route: 065

REACTIONS (1)
  - Acute kidney injury [Recovered/Resolved]
